FAERS Safety Report 8058085-X (Version None)
Quarter: 2012Q1

REPORT INFORMATION
  Report Type: 
  Country: None (occurrence: None)
  Receive Date: 20120113
  Receipt Date: 20120104
  Transmission Date: 20120608
  Serious: Yes (Other)
  Sender: FDA-Public Use
  Company Number: 2011AP003033

PATIENT
  Age: 83 Year
  Sex: Female

DRUGS (3)
  1. BENROFLUMETHIAZIDE (BENDROFLUMETHIAZIDE) [Concomitant]
  2. BECONASE [Concomitant]
  3. AMLODIPINE [Suspect]
     Dosage: 5 MG; PO
     Route: 048

REACTIONS (6)
  - SINUS DISORDER [None]
  - DIZZINESS [None]
  - HEADACHE [None]
  - SWELLING FACE [None]
  - LOCAL SWELLING [None]
  - PHOTOPHOBIA [None]
